FAERS Safety Report 4390448-6 (Version None)
Quarter: 2004Q2

REPORT INFORMATION
  Report Type: 
  Country: None (occurrence: None)
  Receive Date: 20040630
  Receipt Date: 20040617
  Transmission Date: 20050107
  Serious: Yes (Hospitalization)
  Sender: FDA-Public Use
  Company Number: 04H-163-0264504-00

PATIENT

DRUGS (2)
  1. MORPHINE SULFATE INJ [Suspect]
     Indication: ANALGESIC EFFECT
     Dosage: 25 MG/DAY, INTRATHECAL PCA
     Route: 037
  2. BUPIVACAINE HCL [Suspect]
     Indication: ANALGESIC EFFECT
     Dosage: 4.69 MG/DAY,INTRATHECAL PCA
     Route: 037

REACTIONS (7)
  - COMA [None]
  - CONFUSIONAL STATE [None]
  - CONVULSION [None]
  - HYPERTENSION [None]
  - MEDICATION ERROR [None]
  - MEMORY IMPAIRMENT [None]
  - WHITE BLOOD CELL COUNT INCREASED [None]
